FAERS Safety Report 7960392-3 (Version None)
Quarter: 2011Q4

REPORT INFORMATION
  Report Type: 
  Country: None (occurrence: None)
  Receive Date: 20111206
  Receipt Date: 20111128
  Transmission Date: 20120403
  Serious: Yes (Life-Threatening, Hospitalization)
  Sender: FDA-Public Use
  Company Number: IN-GILEAD-2011-0046338

PATIENT
  Sex: Male

DRUGS (10)
  1. NEVIRAPINE [Suspect]
     Indication: HIV INFECTION
     Dosage: 1 DF, BID
     Dates: start: 20110120
  2. MULTIVITAMINS, COMBINATIONS [Concomitant]
     Indication: ROUTINE HEALTH MAINTENANCE
  3. ACETAMINOPHEN [Concomitant]
     Indication: HEAD DISCOMFORT
     Dosage: 500 MG, BID
     Route: 048
     Dates: start: 20110808
  4. AUTRIN                             /00622901/ [Concomitant]
     Indication: PARAESTHESIA
     Dosage: 1 DF, QD
     Route: 048
  5. DICLOFENAC [Concomitant]
     Indication: BACK PAIN
     Dosage: 50 MG, BID
     Route: 048
     Dates: start: 20110830
  6. AMOXICILLIN [Concomitant]
     Indication: PRODUCTIVE COUGH
     Dosage: 500 MG, TID
     Dates: start: 20110928
  7. RANITIDINE HYDROCHLORIDE [Concomitant]
     Indication: DYSPEPSIA
     Dosage: 150 MG, BID
     Route: 048
     Dates: start: 20110830
  8. CETIRIZINE HCL [Concomitant]
     Indication: PRODUCTIVE COUGH
     Dosage: 10 MG, QD
     Route: 048
     Dates: start: 20110928
  9. DIPHENHYDRAMINE HCL [Concomitant]
     Indication: PRODUCTIVE COUGH
     Dosage: 1 DF, TID
     Route: 048
     Dates: start: 20110928
  10. EMTRICITABINE/TENOFOVIR DISOPROXIL FUMARATE [Suspect]
     Indication: HIV INFECTION
     Dosage: 1 DF, QD
     Route: 048
     Dates: start: 20110120

REACTIONS (2)
  - SUICIDE ATTEMPT [None]
  - SUICIDAL IDEATION [None]
